FAERS Safety Report 25114447 (Version 5)
Quarter: 2025Q4

REPORT INFORMATION
  Report Type: Spontaneous
  Country: US (occurrence: US)
  Receive Date: 20250324
  Receipt Date: 20251226
  Transmission Date: 20260117
  Serious: No
  Sender: SANOFI AVENTIS
  Company Number: US-SA-2025SA083966

PATIENT
  Age: 67 Year
  Sex: Male

DRUGS (3)
  1. DUPIXENT [Suspect]
     Active Substance: DUPILUMAB
     Indication: Asthma
     Dosage: 200 MG, 1X
     Route: 058
     Dates: start: 2023, end: 2023
  2. DUPIXENT [Suspect]
     Active Substance: DUPILUMAB
     Dosage: 200 MG, QOW
     Route: 058
     Dates: start: 2023, end: 202412
  3. DUPIXENT [Suspect]
     Active Substance: DUPILUMAB
     Dosage: 200 MG, QOW
     Route: 058
     Dates: start: 202502, end: 202502

REACTIONS (6)
  - Arthralgia [Recovered/Resolved]
  - Injection site mass [Recovered/Resolved]
  - Product dose omission issue [Unknown]
  - Incorrect dose administered [Unknown]
  - Asthma [Recovering/Resolving]
  - Secretion discharge [Not Recovered/Not Resolved]

NARRATIVE: CASE EVENT DATE: 20230101
